FAERS Safety Report 6143392-8 (Version None)
Quarter: 2009Q2

REPORT INFORMATION
  Report Type: 
  Country: None (occurrence: None)
  Receive Date: 20090403
  Receipt Date: 20090401
  Transmission Date: 20091009
  Serious: Yes (Other)
  Sender: FDA-Public Use
  Company Number: CN-PFIZER INC-2009191973

PATIENT

DRUGS (1)
  1. CARDURA [Suspect]
     Indication: PROSTATITIS
     Dosage: 4 MG DAILY
     Route: 048
     Dates: start: 20090101, end: 20090101

REACTIONS (1)
  - IDIOPATHIC THROMBOCYTOPENIC PURPURA [None]
